FAERS Safety Report 6553652-4 (Version None)
Quarter: 2010Q1

REPORT INFORMATION
  Report Type: 
  Country: None (occurrence: None)
  Receive Date: 20100127
  Receipt Date: 20100113
  Transmission Date: 20100710
  Serious: Yes (Other)
  Sender: FDA-Public Use
  Company Number: PHHY2010BR02121

PATIENT
  Sex: Male

DRUGS (7)
  1. FORASEQ [Suspect]
     Dosage: 12/200 MCG
  2. FORASEQ [Suspect]
     Dosage: 12/400
  3. METICORTEN [Concomitant]
     Indication: ASTHMA
     Route: 048
  4. DUOVENT [Concomitant]
     Indication: ASTHMA
  5. ALDOCORTEN [Concomitant]
     Indication: HYPERTENSION
     Dosage: 100 MG, QD
     Route: 048
  6. ENALAPRIL MALEATE [Concomitant]
     Indication: HYPERTENSION
     Dosage: 10 MG, QD
  7. BAMIFIX [Concomitant]
     Dosage: 300 MG

REACTIONS (4)
  - ASTHMA [None]
  - DRUG ADMINISTRATION ERROR [None]
  - DRUG DISPENSING ERROR [None]
  - DRUG INEFFECTIVE [None]
